FAERS Safety Report 6245816-4 (Version None)
Quarter: 2009Q2

REPORT INFORMATION
  Report Type: 
  Country: None (occurrence: None)
  Receive Date: 20090624
  Receipt Date: 20090610
  Transmission Date: 20091009
  Serious: Yes (Hospitalization)
  Sender: FDA-Public Use
  Company Number: 236557K09USA

PATIENT
  Age: 61 Year
  Sex: Female
  Weight: 84 kg

DRUGS (6)
  1. REBIF [Suspect]
     Indication: MULTIPLE SCLEROSIS
     Dosage: SEE IMAGE
     Route: 058
     Dates: start: 20070101, end: 20070101
  2. REBIF [Suspect]
     Indication: MULTIPLE SCLEROSIS
     Dosage: SEE IMAGE
     Route: 058
     Dates: start: 20070101, end: 20070101
  3. REBIF [Suspect]
     Indication: MULTIPLE SCLEROSIS
     Dosage: SEE IMAGE
     Route: 058
     Dates: start: 20070101, end: 20070101
  4. METOPROLOL(METOPROLOL /00376901/) [Concomitant]
  5. INSULIN 70/30(INSULIN /00030501/) [Concomitant]
  6. METFORMIN HCL [Concomitant]

REACTIONS (9)
  - CEREBRAL HAEMORRHAGE [None]
  - CONDITION AGGRAVATED [None]
  - DEPRESSED LEVEL OF CONSCIOUSNESS [None]
  - FALL [None]
  - HEADACHE [None]
  - INCORRECT DOSE ADMINISTERED [None]
  - MALAISE [None]
  - MULTIPLE SCLEROSIS [None]
  - TRAUMATIC BRAIN INJURY [None]
